FAERS Safety Report 18547145 (Version 2)
Quarter: 2021Q1

REPORT INFORMATION
  Report Type: Report from Study
  Country: GR (occurrence: GR)
  Receive Date: 20201125
  Receipt Date: 20210105
  Transmission Date: 20210419
  Serious: Yes (Other)
  Sender: FDA-Public Use
  Company Number: GR-REGENERON PHARMACEUTICALS, INC.-2020-89713

PATIENT

DRUGS (14)
  1. LOSEC [Concomitant]
     Active Substance: OMEPRAZOLE
     Indication: GASTROOESOPHAGEAL REFLUX DISEASE
     Dosage: 20 MG, QD
     Route: 048
     Dates: start: 20200930, end: 20201114
  2. HYDROCORTISONE. [Concomitant]
     Active Substance: HYDROCORTISONE
     Indication: DIPLOPIA
     Dosage: 20 MG, Q8H
     Route: 048
     Dates: start: 20201026, end: 20201104
  3. PEMETREXED. [Suspect]
     Active Substance: PEMETREXED
     Indication: LUNG ADENOCARCINOMA STAGE IV
     Dosage: 500 MG/M2, Q3W
     Route: 042
     Dates: start: 20190703, end: 20190814
  4. LOPRESSOR [Concomitant]
     Active Substance: METOPROLOL TARTRATE
     Indication: SINUS TACHYCARDIA
     Dosage: 50 MG, BID
     Route: 048
  5. T4 [Concomitant]
     Active Substance: LEVOTHYROXINE
     Dosage: 125 MCG, EVERY DAY FROM MONDAY TO FRIDAY
     Route: 048
     Dates: start: 20201105
  6. T4 [Concomitant]
     Active Substance: LEVOTHYROXINE
     Indication: HYPOTHYROIDISM
     Dosage: 112 MCG, EVERY DAY FROM MONDAY TO FRIDAY
     Route: 048
     Dates: start: 20201007, end: 20201104
  7. CILROTON [Concomitant]
     Indication: IMPAIRED GASTRIC EMPTYING
     Dosage: 10 MG, Q8H
     Route: 048
     Dates: start: 20201026
  8. PREZOLON [Concomitant]
     Active Substance: PREDNISOLONE
     Indication: DIPLOPIA
     Dosage: 5 MG, Q12H
     Route: 048
     Dates: start: 20201105, end: 20201113
  9. CEMIPLIMAB [Suspect]
     Active Substance: CEMIPLIMAB
     Indication: LUNG ADENOCARCINOMA STAGE IV
     Dosage: 350 MG, Q3W
     Route: 042
     Dates: start: 20190913, end: 20201006
  10. T4 [Concomitant]
     Active Substance: LEVOTHYROXINE
     Dosage: 112 MCG, EVERY SATURDAY AND SUNDAY
     Route: 048
     Dates: start: 20201105
  11. CISPLATIN. [Suspect]
     Active Substance: CISPLATIN
     Indication: LUNG ADENOCARCINOMA STAGE IV
     Dosage: 75 MG/M2, Q3W
     Route: 042
     Dates: start: 20190703, end: 20190814
  12. ANORO [Concomitant]
     Active Substance: UMECLIDINIUM BROMIDE\VILANTEROL TRIFENATATE
     Indication: CHRONIC OBSTRUCTIVE PULMONARY DISEASE
     Dosage: 55/22 MCG, QD
     Route: 055
  13. T4 [Concomitant]
     Active Substance: LEVOTHYROXINE
     Dosage: 125 MCG, EVERY SATURDAY AND SUNDAY
     Route: 048
     Dates: start: 20201007, end: 20201104
  14. VAXIGRIP [Concomitant]
     Active Substance: INFLUENZA VIRUS VACCINE
     Indication: INFLUENZA
     Dosage: 0.5 ML, AS NECESSARY
     Route: 030
     Dates: start: 20201020, end: 20201020

REACTIONS (1)
  - Central nervous system inflammation [Recovering/Resolving]

NARRATIVE: CASE EVENT DATE: 20201113
